FAERS Safety Report 6057998-8 (Version None)
Quarter: 2009Q1

REPORT INFORMATION
  Report Type: 
  Country: None (occurrence: None)
  Receive Date: 20090129
  Receipt Date: 20090124
  Transmission Date: 20090719
  Serious: Yes (Other)
  Sender: FDA-Public Use
  Company Number: US-B.I. PHARMACEUTICALS,INC./RIDGEFIELD-2009-BP-00930BP

PATIENT
  Sex: Male

DRUGS (16)
  1. SPIRIVA [Suspect]
     Indication: CHRONIC OBSTRUCTIVE PULMONARY DISEASE
     Route: 055
     Dates: start: 20090111
  2. ALBUTEROL SULATE [Suspect]
     Indication: CHRONIC OBSTRUCTIVE PULMONARY DISEASE
     Route: 055
  3. ASTEPRO [Suspect]
  4. ASTEPRO [Suspect]
     Route: 048
     Dates: start: 20090123, end: 20090123
  5. PREVACID [Concomitant]
     Indication: GASTROOESOPHAGEAL REFLUX DISEASE
     Route: 048
  6. KLONOPIN [Concomitant]
     Route: 048
  7. BIAXIN [Concomitant]
     Indication: SINUSITIS
     Route: 048
  8. ZANTAC [Concomitant]
     Indication: GASTROOESOPHAGEAL REFLUX DISEASE
     Route: 048
  9. TIGAN [Concomitant]
     Indication: NAUSEA
  10. DARVOCET [Concomitant]
     Indication: PAIN
     Route: 048
  11. DARVOCET [Concomitant]
     Indication: INTERVERTEBRAL DISC PROTRUSION
  12. BENADRYL [Concomitant]
     Indication: SLEEP DISORDER
     Route: 048
  13. SOMA [Concomitant]
     Indication: SLEEP DISORDER
     Route: 048
  14. PRITIQ [Concomitant]
     Indication: DEPRESSION
     Route: 048
  15. LIDODERM [Concomitant]
     Indication: PAIN
     Route: 062
  16. DEPO-TESTOSTERONE [Concomitant]
     Indication: HORMONE LEVEL ABNORMAL

REACTIONS (7)
  - ASTHENIA [None]
  - DIZZINESS [None]
  - DRUG INTERACTION [None]
  - DYSPNOEA [None]
  - HEART RATE INCREASED [None]
  - MEDICATION ERROR [None]
  - TREMOR [None]
